FAERS Safety Report 5362830-1 (Version None)
Quarter: 2007Q2

REPORT INFORMATION
  Report Type: 
  Country: None (occurrence: None)
  Receive Date: 20070530
  Receipt Date: 20070321
  Transmission Date: 20071010
  Serious: No
  Sender: FDA-Public Use
  Company Number: 2007PV032090

PATIENT
  Age: 57 Year
  Sex: Male
  Weight: 170.0989 kg

DRUGS (2)
  1. BYETTA [Suspect]
     Dosage: SEE IMAGE
     Route: 058
     Dates: start: 20061101, end: 20061201
  2. BYETTA [Suspect]
     Dosage: SEE IMAGE
     Route: 058
     Dates: start: 20061201

REACTIONS (1)
  - WEIGHT DECREASED [None]
